FAERS Safety Report 18172882 (Version 3)
Quarter: 2021Q2

REPORT INFORMATION
  Report Type: Report from Study
  Country: US (occurrence: US)
  Receive Date: 20200819
  Receipt Date: 20210504
  Transmission Date: 20210717
  Serious: Yes (Hospitalization, Other)
  Sender: FDA-Public Use
  Company Number: US-BAUSCH-BL-2020-023366

PATIENT
  Age: 67 Year
  Sex: Female

DRUGS (2)
  1. XIFAXAN [Suspect]
     Active Substance: RIFAXIMIN
     Route: 048
     Dates: end: 202104
  2. XIFAXAN [Suspect]
     Active Substance: RIFAXIMIN
     Indication: HEPATIC ENCEPHALOPATHY
     Route: 048
     Dates: start: 20200704, end: 20200716

REACTIONS (6)
  - Confusional state [Not Recovered/Not Resolved]
  - Therapy interrupted [Unknown]
  - Ammonia increased [Unknown]
  - Inability to afford medication [Unknown]
  - Product distribution issue [Unknown]
  - Septic shock [Unknown]

NARRATIVE: CASE EVENT DATE: 2020
